FAERS Safety Report 20001065 (Version 1)
Quarter: 2021Q4

REPORT INFORMATION
  Report Type: Report from Study
  Country: None (occurrence: CA)
  Receive Date: 20211027
  Receipt Date: 20211027
  Transmission Date: 20220304
  Serious: Yes (Other)
  Sender: FDA-Public Use
  Company Number: CA-ABBVIE-21K-028-4132179-00

PATIENT
  Sex: Female

DRUGS (1)
  1. HUMIRA [Suspect]
     Active Substance: ADALIMUMAB
     Indication: Crohn^s disease
     Route: 058
     Dates: start: 20150126

REACTIONS (6)
  - Stoma creation [Unknown]
  - Weight decreased [Unknown]
  - Contusion [Unknown]
  - Contusion [Unknown]
  - Muscle spasms [Unknown]
  - Alopecia [Unknown]
